FAERS Safety Report 21341228 (Version 1)
Quarter: 2022Q3

REPORT INFORMATION
  Report Type: Spontaneous
  Country: JP (occurrence: JP)
  Receive Date: 20220916
  Receipt Date: 20220916
  Transmission Date: 20221027
  Serious: Yes (Hospitalization, Other)
  Sender: FDA-Public Use
  Company Number: JP-ALKEM LABORATORIES LIMITED-CN-ALKEM-2022-09693

PATIENT
  Age: 18 Year
  Sex: Female

DRUGS (1)
  1. COLCHICINE [Suspect]
     Active Substance: COLCHICINE
     Indication: Product used for unknown indication
     Dosage: 15 MILLIGRAM
     Route: 065

REACTIONS (10)
  - Acidosis [Recovering/Resolving]
  - Anaemia [Recovering/Resolving]
  - Acute kidney injury [Recovering/Resolving]
  - Coagulopathy [Recovering/Resolving]
  - Myocardial infarction [Recovering/Resolving]
  - Overdose [Unknown]
  - Respiratory failure [Recovering/Resolving]
  - Leukopenia [Recovering/Resolving]
  - Liver injury [Recovering/Resolving]
  - Thrombocytopenia [Recovering/Resolving]
